FAERS Safety Report 9286233 (Version 2)
Quarter: 2013Q2

REPORT INFORMATION
  Report Type: Spontaneous
  Country: US (occurrence: None)
  Receive Date: 20130503
  Receipt Date: 20130517
  Transmission Date: 20140414
  Serious: Yes (Hospitalization)
  Sender: FDA-Public Use
  Company Number: 2012-1488

PATIENT
  Age: 56 Year
  Sex: Male

DRUGS (5)
  1. KYPROLIS [Suspect]
     Indication: PLASMA CELL MYELOMA
     Dosage: (35 MG, 2 IN 1 WK)
     Route: 042
     Dates: start: 20121119
  2. REVLIMID (LENALIDOMIDE)(LENALIDOMIDE) [Concomitant]
  3. METOPROLOL (METOPROLOL)(METOPROLOL) [Concomitant]
  4. ARIXTRA (FONDAPARINUX SODIUM)(FONDAPARINUX SODIUM) [Concomitant]
  5. DECADRON (DEXAMETHASONE)(DEXAMETHASONE) [Concomitant]

REACTIONS (3)
  - Eyelid oedema [None]
  - Thrombocytopenia [None]
  - Cauda equina syndrome [None]
